FAERS Safety Report 11254401 (Version 1)
Quarter: 2015Q3

REPORT INFORMATION
  Report Type: Spontaneous
  Country: US (occurrence: None)
  Receive Date: 20150708
  Receipt Date: 20150708
  Transmission Date: 20151125
  Serious: Yes (Other)
  Sender: FDA-Public Use
  Company Number: None

PATIENT
  Age: 95 Year
  Sex: Female
  Weight: 80 kg

DRUGS (1)
  1. ALTEPLASE 100MG GENENTECH [Suspect]
     Active Substance: ALTEPLASE
     Indication: CEREBROVASCULAR ACCIDENT
     Dosage: 65 MG ONCE INTRAVENOUS
     Route: 042
     Dates: start: 20150516, end: 20150516

REACTIONS (1)
  - Lip swelling [None]

NARRATIVE: CASE EVENT DATE: 20150519
